FAERS Safety Report 20328086 (Version 5)
Quarter: 2022Q4

REPORT INFORMATION
  Report Type: Spontaneous
  Country: DE (occurrence: DE)
  Receive Date: 20220112
  Receipt Date: 20221212
  Transmission Date: 20230112
  Serious: Yes (Death, Life-Threatening, Hospitalization, Other)
  Sender: FDA-Public Use
  Company Number: DE-009507513-2112DEU009387

PATIENT
  Age: 28 Year
  Sex: Female
  Weight: 95 kg

DRUGS (19)
  1. CASPOFUNGIN [Suspect]
     Active Substance: CASPOFUNGIN
     Indication: Candida sepsis
     Dosage: 70 MILLIGRAM, QD
     Route: 065
     Dates: start: 20200727, end: 20200811
  2. CASPOFUNGIN [Suspect]
     Active Substance: CASPOFUNGIN
     Indication: Candida infection
     Dosage: 70 MILLIGRAM, QD
     Route: 065
  3. PIPERACILLIN SODIUM\TAZOBACTAM SODIUM [Suspect]
     Active Substance: PIPERACILLIN SODIUM\TAZOBACTAM SODIUM
     Indication: Candida sepsis
     Dosage: UNK
     Route: 065
     Dates: start: 20200805, end: 20200811
  4. PIPERACILLIN SODIUM\TAZOBACTAM SODIUM [Suspect]
     Active Substance: PIPERACILLIN SODIUM\TAZOBACTAM SODIUM
     Indication: Antibiotic therapy
     Dosage: UNK
     Route: 065
     Dates: start: 20200720, end: 20200822
  5. PIPERACILLIN SODIUM\TAZOBACTAM SODIUM [Suspect]
     Active Substance: PIPERACILLIN SODIUM\TAZOBACTAM SODIUM
     Indication: Staphylococcal bacteraemia
  6. MEROPENEM [Suspect]
     Active Substance: MEROPENEM
     Indication: Candida sepsis
     Dosage: 2 GRAM, TOTAL, (LOADING DOSE: 2 G)
     Route: 065
     Dates: start: 20200722, end: 20200722
  7. MEROPENEM [Suspect]
     Active Substance: MEROPENEM
     Indication: Staphylococcal bacteraemia
     Dosage: 6 GRAM, QD, 2 GRAM, TID
     Route: 065
     Dates: start: 20200723, end: 20200801
  8. MEROPENEM [Suspect]
     Active Substance: MEROPENEM
     Dosage: UNK (FOLLOWED BY THREE TIMES AS A SHORT INFUSION)
     Route: 065
  9. FLUCLOXACILLIN SODIUM [Suspect]
     Active Substance: FLUCLOXACILLIN SODIUM
     Indication: Candida sepsis
     Dosage: 12 GRAM, QD
     Route: 065
     Dates: start: 20200803, end: 20200811
  10. FLUCLOXACILLIN SODIUM [Suspect]
     Active Substance: FLUCLOXACILLIN SODIUM
     Indication: Staphylococcal bacteraemia
     Dosage: 12 GRAM, QD
     Route: 065
  11. FLUCONAZOLE [Suspect]
     Active Substance: FLUCONAZOLE
     Indication: Candida sepsis
     Dosage: UNK
     Route: 065
  12. FLUCONAZOLE [Suspect]
     Active Substance: FLUCONAZOLE
     Indication: Fungal skin infection
     Dosage: UNK
     Route: 065
     Dates: start: 20200720, end: 20200726
  13. FLUCONAZOLE [Suspect]
     Active Substance: FLUCONAZOLE
     Indication: Candida infection
  14. NOREPINEPHRINE [Suspect]
     Active Substance: NOREPINEPHRINE
     Indication: Life support
     Dosage: 0.25 MICROGRAM/KILOGRAM
     Route: 065
     Dates: start: 20200720
  15. NOREPINEPHRINE [Suspect]
     Active Substance: NOREPINEPHRINE
     Indication: Vasopressive therapy
  16. MEROPENEM [Suspect]
     Active Substance: MEROPENEM
     Indication: Staphylococcal bacteraemia
     Dosage: 2 GRAM (FOLLOWED BY THREE TIMES AS A SHORT INFUSION)
     Route: 065
  17. VASOPRESSIN [Suspect]
     Active Substance: VASOPRESSIN
     Indication: Vasopressive therapy
     Dosage: UNK
     Route: 065
  18. INSULIN NOS [Concomitant]
     Active Substance: INSULIN NOS
     Indication: Type 1 diabetes mellitus
     Dosage: UNK
     Route: 065
     Dates: start: 20200720
  19. HEPARIN [Concomitant]
     Active Substance: HEPARIN SODIUM
     Indication: Anticoagulant therapy
     Dosage: UNK
     Route: 065

REACTIONS (7)
  - Death [Fatal]
  - Drug ineffective [Unknown]
  - Candida sepsis [Not Recovered/Not Resolved]
  - Acute respiratory distress syndrome [Unknown]
  - Multiple organ dysfunction syndrome [Unknown]
  - Brain injury [Unknown]
  - Thrombocytopenia [Unknown]

NARRATIVE: CASE EVENT DATE: 20200727
